FAERS Safety Report 9170885 (Version 1)
Quarter: 2013Q1

REPORT INFORMATION
  Report Type: Spontaneous
  Country: US (occurrence: US)
  Receive Date: 20130319
  Receipt Date: 20130319
  Transmission Date: 20140127
  Serious: No
  Sender: FDA-Public Use
  Company Number: US-PFIZER INC-2013089151

PATIENT
  Age: 46 Year
  Sex: Female
  Weight: 86.17 kg

DRUGS (2)
  1. ADVIL MIGRAINE [Suspect]
     Indication: HEADACHE
     Dosage: UNK, AS NEEDED
     Route: 048
  2. ADVIL MIGRAINE [Suspect]
     Dosage: UNK, AS NEEDED
     Route: 048
     Dates: start: 20130315, end: 20130315

REACTIONS (1)
  - Eye swelling [Not Recovered/Not Resolved]
